FAERS Safety Report 25799389 (Version 1)
Quarter: 2025Q3

REPORT INFORMATION
  Report Type: Spontaneous
  Country: CL (occurrence: CL)
  Receive Date: 20250913
  Receipt Date: 20250913
  Transmission Date: 20251021
  Serious: Yes (Hospitalization, Other)
  Sender: Medicap Laboratories
  Company Number: CL-Medicap-000058

PATIENT
  Age: 81 Year
  Sex: Female

DRUGS (1)
  1. METFORMIN [Suspect]
     Active Substance: METFORMIN HYDROCHLORIDE
     Indication: Product used for unknown indication
     Route: 065

REACTIONS (3)
  - Acute kidney injury [Recovered/Resolved]
  - Shock [Recovered/Resolved]
  - Lactic acidosis [Recovered/Resolved]
